FAERS Safety Report 5705339-5 (Version None)
Quarter: 2008Q2

REPORT INFORMATION
  Report Type: 
  Country: None (occurrence: None)
  Receive Date: 20080410
  Receipt Date: 20080326
  Transmission Date: 20081010
  Serious: Yes (Death)
  Sender: FDA-Public Use
  Company Number: 2008US000900

PATIENT
  Age: 35 Day
  Sex: Female

DRUGS (5)
  1. AMBISOME [Suspect]
     Indication: SEPSIS
     Dosage: 5.6 MG, UID/QD
     Dates: start: 20071211, end: 20071220
  2. CANCIDAS [Suspect]
     Indication: SEPSIS
     Dosage: 4 MG, UID/QD
     Dates: start: 20071217, end: 20071220
  3. VANCOMYCIN [Concomitant]
  4. FUROSEMIDE [Concomitant]
  5. MERONEM (MEROPENEM) [Concomitant]

REACTIONS (1)
  - MYOCARDITIS [None]
